FAERS Safety Report 6992293-1 (Version None)
Quarter: 2010Q3

REPORT INFORMATION
  Report Type: 
  Country: None (occurrence: None)
  Receive Date: 20100917
  Receipt Date: 20100908
  Transmission Date: 20110219
  Serious: Yes (Hospitalization)
  Sender: FDA-Public Use
  Company Number: PHHY2010JP59933

PATIENT
  Age: 54 Year
  Sex: Female

DRUGS (4)
  1. FAMVIR [Suspect]
     Indication: HERPES ZOSTER
     Dosage: 1500 MG, QD
     Route: 048
     Dates: start: 20100903, end: 20100905
  2. VIDARABINE [Suspect]
     Indication: HERPES ZOSTER
     Dosage: UNK
     Route: 061
     Dates: start: 20100903, end: 20100905
  3. AZUNOL [Suspect]
     Indication: HERPES ZOSTER
     Dosage: UNK
     Route: 061
     Dates: start: 20100903, end: 20100905
  4. GENTAMICIN [Suspect]
     Indication: HERPES ZOSTER
     Dosage: UNK
     Route: 061
     Dates: start: 20100903, end: 20100905

REACTIONS (4)
  - APATHY [None]
  - DECREASED APPETITE [None]
  - MALAISE [None]
  - NAUSEA [None]
